FAERS Safety Report 16532206 (Version 3)
Quarter: 2023Q1

REPORT INFORMATION
  Report Type: Spontaneous
  Country: DK (occurrence: DK)
  Receive Date: 20190705
  Receipt Date: 20230207
  Transmission Date: 20230417
  Serious: Yes (Hospitalization)
  Sender: FDA-Public Use
  Company Number: None

PATIENT
  Age: 61 Year
  Sex: Male
  Weight: 80 kg

DRUGS (24)
  1. PRIVIGEN [Suspect]
     Active Substance: HUMAN IMMUNOGLOBULIN G
     Indication: Immunomodulatory therapy
     Dosage: 45 GRAM, SINGLE
     Route: 042
     Dates: start: 20190429, end: 20190430
  2. PRIVIGEN [Suspect]
     Active Substance: HUMAN IMMUNOGLOBULIN G
     Dosage: 5 GRAM
     Route: 042
     Dates: start: 20190430
  3. PRIVIGEN [Suspect]
     Active Substance: HUMAN IMMUNOGLOBULIN G
     Dosage: 45 GRAM, SINGLE
     Route: 042
     Dates: start: 20190429, end: 20190430
  4. PRIVIGEN [Suspect]
     Active Substance: HUMAN IMMUNOGLOBULIN G
     Dosage: 45 GRAM, SINGLE
     Route: 042
     Dates: start: 20190429, end: 20190430
  5. PRIVIGEN [Suspect]
     Active Substance: HUMAN IMMUNOGLOBULIN G
     Dosage: 5 GRAM
     Route: 042
     Dates: start: 20190429
  6. PRIVIGEN [Suspect]
     Active Substance: HUMAN IMMUNOGLOBULIN G
     Dosage: 40 GRAM
     Route: 042
     Dates: start: 20190430
  7. PRIVIGEN [Suspect]
     Active Substance: HUMAN IMMUNOGLOBULIN G
     Dosage: 40 GRAM
     Route: 042
     Dates: start: 20190429
  8. PRIVIGEN [Suspect]
     Active Substance: HUMAN IMMUNOGLOBULIN G
     Dosage: 45 GRAM
     Route: 042
     Dates: start: 20190430
  9. LATANOPROST [Concomitant]
     Active Substance: LATANOPROST
     Indication: Glaucoma
     Dosage: 1 DF (1 DROP IN EACH EYE), QD, STRENGTH: 50 MICROGRAM/ML
     Route: 065
     Dates: start: 20190110
  10. MABLET [Concomitant]
     Indication: Mineral supplementation
     Dosage: 1 DF, QD
     Route: 048
     Dates: start: 20180220
  11. MABLET [Concomitant]
     Indication: Mineral supplementation
  12. LANSOPRAZOL TEVA [Concomitant]
     Indication: Gastrooesophageal reflux disease
     Dosage: 30 MG, QD
     Route: 048
     Dates: start: 20130306
  13. AMLODIPIN ACTAVIS                  /00972402/ [Concomitant]
     Indication: Prophylaxis
     Dosage: 10 MG, QD, STRENGTH: 10 MG
     Route: 048
     Dates: start: 20150121
  14. AMLODIPIN ACTAVIS                  /00972402/ [Concomitant]
     Indication: Angina pectoris
  15. LYRICA [Concomitant]
     Active Substance: PREGABALIN
     Indication: Neuralgia
     Dosage: 200 MILLIGRAM, QD, STRENGTH: 25 MG  OG 75 MG
     Route: 048
     Dates: start: 20190320
  16. LYRICA [Concomitant]
     Active Substance: PREGABALIN
     Dosage: 50 MILLIGRAM, QD
     Route: 048
     Dates: start: 20190320
  17. BENDROFLUMETHIAZIDE\POTASSIUM CHLORIDE [Concomitant]
     Active Substance: BENDROFLUMETHIAZIDE\POTASSIUM CHLORIDE
     Indication: Hypertension
     Dosage: 1 DF, QD, STRENGTH: 2.5 + 573 MG
     Route: 048
     Dates: start: 20140624
  18. ENALAPRIL [Concomitant]
     Active Substance: ENALAPRIL
     Indication: Hypertension
     Dosage: 20 MG, QD; STRENGTH: 20 MG
     Route: 048
     Dates: start: 20161109
  19. FLUTICASONE FUROATE [Concomitant]
     Active Substance: FLUTICASONE FUROATE
     Indication: Rhinitis allergic
     Dosage: 2 DF (1 SPRAY IN EACH NOSTRIL), QD, STRENGTH: 27.5 MG
     Route: 048
     Dates: start: 20190410
  20. HJERTEALBYL [Concomitant]
     Indication: Thrombosis prophylaxis
     Dosage: 75 MG, QD, STRENGTH: 75 MG
     Route: 048
     Dates: start: 20130709
  21. RIBOFLAVIN [Concomitant]
     Active Substance: RIBOFLAVIN
     Indication: Supplementation therapy
     Dosage: UNK
     Route: 065
     Dates: start: 20180910
  22. ASPIRIN [Concomitant]
     Active Substance: ASPIRIN
     Indication: Thrombosis prophylaxis
     Dosage: 75 MILLIGRAM, QD, STRENGTH: 75 MG
     Route: 048
     Dates: start: 20180220
  23. ASPIRIN [Concomitant]
     Active Substance: ASPIRIN
  24. MAGNESIUM OXIDE [Concomitant]
     Active Substance: MAGNESIUM OXIDE
     Indication: Thrombosis prophylaxis
     Dosage: 75 MILLIGRAM, QD
     Route: 048
     Dates: start: 20130709

REACTIONS (6)
  - Meningitis aseptic [Recovered/Resolved]
  - Pain [Recovered/Resolved]
  - Photophobia [Recovered/Resolved]
  - Neck pain [Recovered/Resolved]
  - Myalgia [Recovered/Resolved]
  - Headache [Recovered/Resolved]

NARRATIVE: CASE EVENT DATE: 20190501
